FAERS Safety Report 5511250-5 (Version None)
Quarter: 2007Q4

REPORT INFORMATION
  Report Type: 
  Country: None (occurrence: None)
  Receive Date: 20071109
  Receipt Date: 20071031
  Transmission Date: 20080405
  Serious: Yes (Hospitalization)
  Sender: FDA-Public Use
  Company Number: DE-ROCHE-354373

PATIENT
  Age: 34 Year
  Sex: Male
  Weight: 73 kg

DRUGS (44)
  1. DACLIZUMAB [Suspect]
     Route: 042
     Dates: end: 20031009
  2. DACLIZUMAB [Suspect]
     Route: 042
     Dates: start: 20030815, end: 20030815
  3. MYCOPHENOLATE MOFETIL [Suspect]
     Route: 048
     Dates: start: 20030815
  4. MYCOPHENOLATE MOFETIL [Suspect]
     Route: 048
     Dates: start: 20030920
  5. MYCOPHENOLATE MOFETIL [Suspect]
     Route: 048
     Dates: start: 20031230, end: 20040113
  6. MYCOPHENOLATE MOFETIL [Suspect]
     Route: 048
     Dates: start: 20040114
  7. CYCLOSPORINE [Suspect]
     Route: 048
     Dates: start: 20030815, end: 20030815
  8. CYCLOSPORINE [Suspect]
     Route: 048
     Dates: start: 20030816
  9. CYCLOSPORINE [Suspect]
     Dosage: 150 + 125
     Route: 048
     Dates: start: 20030820
  10. CYCLOSPORINE [Suspect]
     Route: 048
     Dates: start: 20030910
  11. CYCLOSPORINE [Suspect]
     Route: 048
     Dates: start: 20031023
  12. CYCLOSPORINE [Suspect]
     Route: 048
     Dates: start: 20031203
  13. CYCLOSPORINE [Suspect]
     Route: 048
     Dates: start: 20031205
  14. CYCLOSPORINE [Suspect]
     Dosage: 125+100
     Route: 048
     Dates: start: 20031217, end: 20031222
  15. METHYLPREDNISOLONE [Suspect]
     Route: 048
     Dates: start: 20030914
  16. METHYLPREDNISOLONE [Suspect]
     Route: 048
     Dates: start: 20031224
  17. TACROLIMUS [Suspect]
     Dosage: ADJUSTED TO REACH PREDEFINED LEVELS.
     Route: 048
     Dates: start: 20031222
  18. TACROLIMUS [Suspect]
     Route: 048
     Dates: start: 20050202
  19. ATORVASTATIN CALCIUM [Concomitant]
     Route: 048
     Dates: start: 20030911
  20. CALCIUM CARBONATE [Concomitant]
     Dosage: REDUCED TO 3 GRAM DAILY ON 19 DECEMBER 2003.
     Route: 048
     Dates: start: 20030908
  21. CALCIUM CARBONATE [Concomitant]
     Route: 048
     Dates: start: 20050204
  22. METOPROLOL TARTRATE [Concomitant]
     Route: 048
     Dates: start: 20030815
  23. LOSARTAN POTASSIUM [Concomitant]
     Route: 048
     Dates: start: 20030815, end: 20031218
  24. ENALAPRIL MALEATE [Concomitant]
     Route: 048
     Dates: start: 20031024
  25. PENTOXIFYLLINE [Concomitant]
  26. CALCITRIOL [Concomitant]
     Route: 048
     Dates: start: 20031009, end: 20031229
  27. RANITIDINE HCL [Concomitant]
     Route: 048
     Dates: start: 20030815
  28. CANDESARTAN CILEXETIL [Concomitant]
     Route: 048
     Dates: start: 20031217
  29. NADROPARIN [Concomitant]
     Route: 058
     Dates: start: 20031220
  30. ACYCLOVIR [Concomitant]
     Dates: start: 20030820, end: 20030905
  31. AMPHOTERICIN B [Concomitant]
     Dates: start: 20030815, end: 20030909
  32. BISOPROLOL FUMARATE [Concomitant]
     Dates: start: 20031023, end: 20031203
  33. CIPROFLOXACIN [Concomitant]
     Dates: start: 20030815, end: 20040106
  34. COTRIM [Concomitant]
     Dates: start: 20030818, end: 20030906
  35. TORSEMIDE [Concomitant]
     Dates: start: 20031023, end: 20031204
  36. NATRIUM BICARBONAT [Concomitant]
     Dates: start: 20050202
  37. FOLIGAN [Concomitant]
     Dates: start: 20050202
  38. ENAHEXAL [Concomitant]
     Dates: start: 20040825
  39. SORTIS [Concomitant]
     Dates: start: 20040825
  40. PANTOPRAZOLE SODIUM [Concomitant]
     Dates: start: 20050202
  41. METOPROLOL SUCCINATE [Concomitant]
     Dates: start: 20050202
  42. ATACAND [Concomitant]
     Dates: start: 20050202
  43. FRAXIPARIN [Concomitant]
     Dates: start: 20050202, end: 20050209
  44. DECOSTRIOL [Concomitant]
     Dates: start: 20050202

REACTIONS (3)
  - BLOOD CREATININE INCREASED [None]
  - DIARRHOEA [None]
  - RENAL ARTERY STENOSIS [None]
